FAERS Safety Report 7927142-8 (Version None)
Quarter: 2011Q4

REPORT INFORMATION
  Report Type: 
  Country: None (occurrence: None)
  Receive Date: 20111116
  Receipt Date: 20111107
  Transmission Date: 20120403
  Serious: Yes (Other)
  Sender: FDA-Public Use
  Company Number: AUR-APL-2011-05641

PATIENT
  Age: 33 Year
  Sex: Female
  Weight: 85.2 kg

DRUGS (8)
  1. METFORMIN HCL [Suspect]
     Indication: TYPE 1 DIABETES MELLITUS
     Dosage: 1700 MG (850 MG,2 IN 1 D)
     Dates: start: 20100701
  2. NPH INSULIN [Suspect]
     Indication: PRODUCT USED FOR UNKNOWN INDICATION
     Dates: start: 20100501
  3. NPH INSULIN [Suspect]
     Indication: PRODUCT USED FOR UNKNOWN INDICATION
     Dates: start: 19960101
  4. NPH INSULIN [Suspect]
     Indication: PRODUCT USED FOR UNKNOWN INDICATION
     Dates: start: 20110501
  5. LOSARTAN POTASSIUM [Concomitant]
  6. INSULIN [Suspect]
     Indication: PRODUCT USED FOR UNKNOWN INDICATION
  7. ATORVASTATIN CALCIUM [Suspect]
     Indication: PRODUCT USED FOR UNKNOWN INDICATION
     Dosage: 40 MG (40 MG,1 IN 1 D)
  8. LEVOTHYROXINE SODIUM [Concomitant]

REACTIONS (14)
  - DIABETES MELLITUS INADEQUATE CONTROL [None]
  - BLOOD PRESSURE DIASTOLIC INCREASED [None]
  - HYPOREFLEXIA [None]
  - HIGH DENSITY LIPOPROTEIN DECREASED [None]
  - BLOOD UREA INCREASED [None]
  - MICROALBUMINURIA [None]
  - DECREASED ACTIVITY [None]
  - BLOOD TRIGLYCERIDES INCREASED [None]
  - TREATMENT NONCOMPLIANCE [None]
  - GLYCOSYLATED HAEMOGLOBIN INCREASED [None]
  - BLOOD CHOLESTEROL INCREASED [None]
  - HYPERGLYCAEMIA [None]
  - RESPIRATORY RATE DECREASED [None]
  - LOW DENSITY LIPOPROTEIN INCREASED [None]
